FAERS Safety Report 9554327 (Version 1)
Quarter: 2013Q3

REPORT INFORMATION
  Report Type: Spontaneous
  Country: GB (occurrence: None)
  Receive Date: 20130726
  Receipt Date: 20130726
  Transmission Date: 20140515
  Serious: Yes (Hospitalization, Disabling)
  Sender: FDA-Public Use
  Company Number: E2B_00000914

PATIENT
  Age: 48 Year
  Sex: Male

DRUGS (3)
  1. QUETIAPINE (UNKNOWN) [Suspect]
     Indication: PERSONALITY DISORDER
     Dosage: 100 MG (50 MG, 2 IN 1 D)
  2. FLUOXETINE (UNKNOWN) [Concomitant]
  3. SALBUTAMOL SULPHATE (VENTOLIN) (INHALANT) [Concomitant]

REACTIONS (1)
  - Priapism [None]
